FAERS Safety Report 15973999 (Version 2)
Quarter: 2019Q2

REPORT INFORMATION
  Report Type: Report from Study
  Country: JP (occurrence: JP)
  Receive Date: 20190217
  Receipt Date: 20190419
  Transmission Date: 20190711
  Serious: Yes (Death, Other)
  Sender: FDA-Public Use
  Company Number: JP-BRISTOL-MYERS SQUIBB COMPANY-BMS-2019-014697

PATIENT
  Age: 59 Year
  Sex: Female
  Weight: 35.5 kg

DRUGS (2)
  1. NIVOLUMAB [Suspect]
     Active Substance: NIVOLUMAB
     Indication: MALIGNANT MELANOMA
     Dosage: 1 MG/KG, UNK
     Route: 041
     Dates: start: 20180911, end: 20181002
  2. IPILIMUMAB [Suspect]
     Active Substance: IPILIMUMAB
     Indication: MALIGNANT MELANOMA
     Dosage: 3 MG/KG, UNK
     Route: 041
     Dates: start: 20180911, end: 20181002

REACTIONS (2)
  - Malignant neoplasm progression [Fatal]
  - Hepatitis [Recovering/Resolving]

NARRATIVE: CASE EVENT DATE: 20181016
